FAERS Safety Report 4579337-1 (Version None)
Quarter: 2005Q1

REPORT INFORMATION
  Report Type: 
  Country: None (occurrence: None)
  Receive Date: 20050209
  Receipt Date: 20050104
  Transmission Date: 20050727
  Serious: Yes (Other)
  Sender: FDA-Public Use
  Company Number: 2004108931

PATIENT
  Age: 69 Year
  Sex: Female
  Weight: 77.1115 kg

DRUGS (18)
  1. DETROL LA [Suspect]
     Indication: MICTURITION URGENCY
     Dosage: 4 MG (4 MG, QD), ORAL
     Route: 048
  2. FEXOFENADINE HYDROCHLORIDE [Concomitant]
  3. ESOMEPRAZOLE  (ESOMEPRAZOLE) [Concomitant]
  4. CLOPIDOGREL BISULFATE [Concomitant]
  5. MONTELUKAST SODIUM (MONTELUKAST SODIUM) [Concomitant]
  6. PAROXETINE HCL [Concomitant]
  7. AMLODIPINE BESYLATE [Concomitant]
  8. PRAMIPEXOLE (PRAMIPEXOLE) [Concomitant]
  9. SERETIDE MITE (FLUTICASONE PROPIONATE, SALMETEROL XINAFOATE) [Concomitant]
  10. TEGASEROD (TEGASEROD) [Concomitant]
  11. BUDESONIDE (BUDESONIDE) [Concomitant]
  12. AZELASTINE HYDROCHLORIDE (AZELASTINE HYDROCHLORIDE) [Concomitant]
  13. HYDRODIURIL [Concomitant]
  14. BEXTRA [Concomitant]
  15. LORAZEPAM [Concomitant]
  16. TOPIRAMATE [Concomitant]
  17. MULTIVITAMINS (ASCORBIC ACID, ERGOCALCIFEROL, FOLIC ACID, NICOTINAMIDE [Concomitant]
  18. EZETIMIBE (EZETIMIBE) [Concomitant]

REACTIONS (2)
  - THERAPY NON-RESPONDER [None]
  - URINARY INCONTINENCE [None]
